FAERS Safety Report 4648203-5 (Version None)
Quarter: 2005Q2

REPORT INFORMATION
  Report Type: 
  Country: None (occurrence: None)
  Receive Date: 20050331
  Receipt Date: 20050112
  Transmission Date: 20051028
  Serious: No
  Sender: FDA-Public Use
  Company Number: 05P-163-0286191-00

PATIENT
  Age: 71 Year
  Sex: Female
  Weight: 76.6579 kg

DRUGS (5)
  1. HUMIRA [Suspect]
     Indication: RHEUMATOID ARTHRITIS
     Dosage: 40 MG, 1 IN 2 WK, SUBCUTANEOUS
     Route: 058
     Dates: start: 20040501
  2. LOSARTAN POTASSIUM [Concomitant]
  3. MELOXICAM [Concomitant]
  4. AREVA [Concomitant]
  5. GLIBENCLAMIDE [Concomitant]

REACTIONS (1)
  - SKIN ULCER [None]
